FAERS Safety Report 12881482 (Version 4)
Quarter: 2017Q1

REPORT INFORMATION
  Report Type: Spontaneous
  Country: MX (occurrence: MX)
  Receive Date: 20161025
  Receipt Date: 20170330
  Transmission Date: 20170428
  Serious: Yes (Other)
  Sender: FDA-Public Use
  Company Number: ALCN2016MX007162

PATIENT
  Age: 73 Year
  Sex: Female

DRUGS (4)
  1. NATAMYCIN [Suspect]
     Active Substance: NATAMYCIN
     Indication: EYE INFECTION
     Dosage: UNK
     Route: 047
  2. AMPHOTERICIN B. [Suspect]
     Active Substance: AMPHOTERICIN B
     Indication: EYE INFECTION
     Dosage: UNK
     Route: 047
  3. MOXIFLOXACIN. [Suspect]
     Active Substance: MOXIFLOXACIN
     Indication: EYE INFECTION
     Dosage: UNK
     Route: 047
  4. ITRACONAZOLE. [Suspect]
     Active Substance: ITRACONAZOLE
     Indication: EYE INFECTION
     Dosage: UNK
     Route: 062

REACTIONS (4)
  - Keratitis [Recovered/Resolved with Sequelae]
  - Corneal perforation [Recovered/Resolved with Sequelae]
  - Disease progression [Recovered/Resolved with Sequelae]
  - Drug ineffective [Unknown]
